FAERS Safety Report 6443855-1 (Version None)
Quarter: 2009Q4

REPORT INFORMATION
  Report Type: 
  Country: None (occurrence: None)
  Receive Date: 20091113
  Receipt Date: 20091110
  Transmission Date: 20100525
  Serious: Yes (Hospitalization)
  Sender: FDA-Public Use
  Company Number: 2007SP017398

PATIENT
  Age: 68 Year
  Sex: Male
  Weight: 58.2 kg

DRUGS (8)
  1. PEG-INTRON [Suspect]
     Indication: HEPATITIS C
     Dosage: 80 MCG; QW; SC
     Route: 058
     Dates: start: 20070720, end: 20070727
  2. PEG-INTRON [Suspect]
     Indication: HEPATITIS C
     Dosage: 80 MCG; QW; SC
     Route: 058
     Dates: start: 20070905, end: 20071205
  3. REBETOL [Suspect]
     Indication: HEPATITIS C
     Dosage: 600 MG; QD; PO
     Route: 048
     Dates: start: 20070720, end: 20070727
  4. REBETOL [Suspect]
     Indication: HEPATITIS C
     Dosage: 600 MG; QD; PO
     Route: 048
     Dates: start: 20070905, end: 20071205
  5. OMEPRAL [Concomitant]
  6. HYPEN [Concomitant]
  7. MAGNESIUM OXIDE [Concomitant]
  8. URSO 250 [Concomitant]

REACTIONS (2)
  - BACK PAIN [None]
  - ILEUS [None]
